FAERS Safety Report 4613525-0 (Version None)
Quarter: 2005Q1

REPORT INFORMATION
  Report Type: 
  Country: None (occurrence: None)
  Receive Date: 20050316
  Receipt Date: 20050303
  Transmission Date: 20050727
  Serious: Yes (Other)
  Sender: FDA-Public Use
  Company Number: DEU-2005-0001309

PATIENT
  Age: 30 Year
  Sex: Female

DRUGS (6)
  1. OXYGESIC 20 MG (OXYCODONE HYDROCHLORIDE) CR TABLET [Suspect]
     Indication: PAIN
     Dosage: 20 MG, DAILY, ORAL
     Route: 048
     Dates: start: 20041101
  2. FEMOVANE (ETHINYLESTRADIOL, GESTODENE) [Suspect]
     Indication: CONTRACEPTION
     Dosage: ORAL
     Route: 048
     Dates: start: 19970101
  3. TILDINE (TILDINE HYDROCHLORIDE) [Concomitant]
  4. ANTIFLAMMATORY/ANTIRHEUMATIC PRODUCTS [Concomitant]
  5. DICLOFENAC SODIUM [Concomitant]
  6. IBUPROFEN [Concomitant]

REACTIONS (3)
  - DRUG EXPOSURE DURING PREGNANCY [None]
  - DRUG INTERACTION [None]
  - PREGNANCY [None]
